FAERS Safety Report 7650755-8 (Version None)
Quarter: 2011Q3

REPORT INFORMATION
  Report Type: 
  Country: None (occurrence: None)
  Receive Date: 20110802
  Receipt Date: 20110727
  Transmission Date: 20111222
  Serious: Yes (Other)
  Sender: FDA-Public Use
  Company Number: GB-PFIZER INC-2011171822

PATIENT

DRUGS (1)
  1. SUNITINIB MALATE [Suspect]
     Dosage: 50 MG, ON 4 WEEKS ON, 2 WEEKS OFF SCHEDULE

REACTIONS (2)
  - CAMPYLOBACTER INFECTION [None]
  - DIARRHOEA [None]
